FAERS Safety Report 8747248 (Version 2)
Quarter: 2012Q4

REPORT INFORMATION
  Report Type: 
  Country: US (occurrence: US)
  Receive Date: 20120827
  Receipt Date: 20120917
  Transmission Date: 20130627
  Serious: Yes (Death, Hospitalization)
  Sender: FDA-Public Use
  Company Number: US-ACTELION-A-US2012-70299

PATIENT
  Age: 47 Year
  Sex: Female

DRUGS (5)
  1. VELETRI [Suspect]
     Indication: PULMONARY ARTERIAL HYPERTENSION
     Dosage: 25 ng/kg, per min
     Route: 042
     Dates: start: 20120311, end: 20120829
  2. VELETRI [Suspect]
     Dosage: 24 ng/kg, per min
     Route: 042
  3. TRACLEER [Suspect]
     Indication: PULMONARY ARTERIAL HYPERTENSION
     Dosage: 125
     Route: 048
     Dates: start: 20120607, end: 20120829
  4. TRACLEER [Suspect]
     Dosage: 62.5
     Route: 048
     Dates: start: 20080507, end: 20080606
  5. COUMADIN [Concomitant]

REACTIONS (5)
  - Pulmonary hypertension [Fatal]
  - Cerebrovascular accident [Unknown]
  - Subarachnoid haemorrhage [Unknown]
  - Mental disorder [Unknown]
  - Pulmonary oedema [Unknown]
